FAERS Safety Report 10851828 (Version 1)
Quarter: 2015Q1

REPORT INFORMATION
  Report Type: Spontaneous
  Country: US (occurrence: US)
  Receive Date: 20150222
  Receipt Date: 20150222
  Transmission Date: 20150721
  Serious: No
  Sender: FDA-Public Use
  Company Number: US-ALLERGAN-1412093US

PATIENT
  Age: 47 Year
  Sex: Female

DRUGS (4)
  1. BOTOX [Suspect]
     Active Substance: ONABOTULINUMTOXINA
     Indication: HYPERHIDROSIS
     Dosage: 12 UNITS, SINGLE
     Route: 030
     Dates: start: 20140506, end: 20140506
  2. BOTOX [Suspect]
     Active Substance: ONABOTULINUMTOXINA
     Dosage: 32 UNITS, SINGLE
     Route: 030
     Dates: start: 20140311, end: 20140311
  3. BOTOX [Suspect]
     Active Substance: ONABOTULINUMTOXINA
     Dosage: 12 UNITS, SINGLE
     Route: 030
     Dates: start: 20140506, end: 20140506
  4. BOTOX [Suspect]
     Active Substance: ONABOTULINUMTOXINA
     Dosage: 32 UNITS, SINGLE
     Route: 030
     Dates: start: 20140311, end: 20140311

REACTIONS (2)
  - Drug ineffective [Unknown]
  - Incorrect route of drug administration [Unknown]
